FAERS Safety Report 10760837 (Version 1)
Quarter: 2015Q1

REPORT INFORMATION
  Report Type: Spontaneous
  Country: US (occurrence: US)
  Receive Date: 20150204
  Receipt Date: 20150204
  Transmission Date: 20150721
  Serious: Yes (Other)
  Sender: FDA-Public Use
  Company Number: US-SA-2015SA012587

PATIENT
  Age: 41 Year
  Sex: Female
  Weight: 63.6 kg

DRUGS (27)
  1. LEVOFLOXACIN. [Concomitant]
     Active Substance: LEVOFLOXACIN
  2. ACETAMINOPHEN. [Concomitant]
     Active Substance: ACETAMINOPHEN
  3. FABRAZYME [Suspect]
     Active Substance: AGALSIDASE BETA
     Indication: LIPIDOSIS
     Route: 042
     Dates: start: 20120806
  4. SINGULAIR [Concomitant]
     Active Substance: MONTELUKAST SODIUM
  5. MUCINEX [Concomitant]
     Active Substance: GUAIFENESIN
     Dosage: MUCINEX COLD LIQUID
  6. NORCO [Concomitant]
     Active Substance: ACETAMINOPHEN\HYDROCODONE BITARTRATE
  7. DIPHENHYDRAMINE [Concomitant]
     Active Substance: DIPHENHYDRAMINE
  8. ZYRTEC [Concomitant]
     Active Substance: CETIRIZINE HYDROCHLORIDE
  9. PAXIL [Concomitant]
     Active Substance: PAROXETINE HYDROCHLORIDE
  10. ALPRAZOLAM. [Concomitant]
     Active Substance: ALPRAZOLAM
  11. FABRAZYME [Suspect]
     Active Substance: AGALSIDASE BETA
     Indication: LIPIDOSIS
     Route: 042
     Dates: start: 20120806
  12. WELLBUTRIN [Concomitant]
     Active Substance: BUPROPION HYDROCHLORIDE
  13. ZITHROMAX [Concomitant]
     Active Substance: AZITHROMYCIN DIHYDRATE
  14. BACTRIM [Concomitant]
     Active Substance: SULFAMETHOXAZOLE\TRIMETHOPRIM
  15. EPINEPHRINE. [Concomitant]
     Active Substance: EPINEPHRINE
  16. PREDNISONE. [Concomitant]
     Active Substance: PREDNISONE
  17. SODIUM CHLORIDE. [Concomitant]
     Active Substance: SODIUM CHLORIDE
  18. WATER. [Concomitant]
     Active Substance: WATER
  19. LAMICTAL [Concomitant]
     Active Substance: LAMOTRIGINE
  20. AMOXICILLIN. [Concomitant]
     Active Substance: AMOXICILLIN
  21. NABUMETONE. [Concomitant]
     Active Substance: NABUMETONE
  22. SOLU-MEDROL [Concomitant]
     Active Substance: METHYLPREDNISOLONE SODIUM SUCCINATE
  23. OMEPRAZOLE. [Concomitant]
     Active Substance: OMEPRAZOLE
  24. ONDANSETRON [Concomitant]
     Active Substance: ONDANSETRON
  25. PROMETHAZINE [Concomitant]
     Active Substance: PROMETHAZINE\PROMETHAZINE HYDROCHLORIDE
  26. NORMAL SALINE [Concomitant]
     Active Substance: SODIUM CHLORIDE
  27. CEFUROXIME. [Concomitant]
     Active Substance: CEFUROXIME

REACTIONS (2)
  - Cardiac disorder [Not Recovered/Not Resolved]
  - Sinusitis [Not Recovered/Not Resolved]
